FAERS Safety Report 8544857-1 (Version None)
Quarter: 2012Q3

REPORT INFORMATION
  Report Type: 
  Country: None (occurrence: None)
  Receive Date: 20120727
  Receipt Date: 20120719
  Transmission Date: 20120928
  Serious: Yes (Other)
  Sender: FDA-Public Use
  Company Number: US-JNJFOC-20120712619

PATIENT
  Age: 53 Year
  Sex: Male

DRUGS (4)
  1. IBUPROFEN [Suspect]
     Indication: PRODUCT USED FOR UNKNOWN INDICATION
     Dosage: AS NEEDED
     Route: 065
     Dates: start: 20120524
  2. PRINZIDE [Suspect]
     Indication: HYPERTENSION
     Dosage: 10-12.5 MG
     Route: 065
     Dates: start: 20120524
  3. CYMBALTA [Suspect]
     Indication: FIBROMYALGIA
     Route: 065
     Dates: start: 20120524
  4. NEURONTIN [Suspect]
     Indication: FIBROMYALGIA
     Route: 048
     Dates: start: 20120524

REACTIONS (3)
  - IMPAIRED WORK ABILITY [None]
  - FIBROMYALGIA [None]
  - SINUSITIS [None]
